FAERS Safety Report 19158184 (Version 2)
Quarter: 2022Q1

REPORT INFORMATION
  Report Type: Spontaneous
  Country: US (occurrence: US)
  Receive Date: 20210420
  Receipt Date: 20220208
  Transmission Date: 20220424
  Serious: Yes (Other)
  Sender: FDA-Public Use
  Company Number: US-PFIZER INC-2021385081

PATIENT
  Age: 52 Year
  Sex: Female

DRUGS (1)
  1. IBRANCE [Suspect]
     Active Substance: PALBOCICLIB
     Indication: Breast cancer female
     Dosage: 125 MG
     Dates: start: 20210122

REACTIONS (7)
  - Haemorrhage [Unknown]
  - Leukopenia [Unknown]
  - Neutropenia [Unknown]
  - Contusion [Unknown]
  - Dry skin [Unknown]
  - Fatigue [Unknown]
  - Anaemia [Unknown]
